FAERS Safety Report 17237958 (Version 1)
Quarter: 2020Q1

REPORT INFORMATION
  Report Type: Spontaneous
  Country: US (occurrence: US)
  Receive Date: 20200106
  Receipt Date: 20200106
  Transmission Date: 20200409
  Serious: No
  Sender: FDA-Public Use
  Company Number: US-PACIRA-201900009

PATIENT
  Sex: Female
  Weight: 66 kg

DRUGS (3)
  1. LIDOCAINE. [Suspect]
     Active Substance: LIDOCAINE
     Indication: NERVE BLOCK
     Dosage: 8 ML INITIAL BLOCK 1ST METATARSAL PHALANGEAL JOINT, 35 MINS PRIOR TO EXPAREL
     Dates: start: 20190227
  2. EXPAREL [Suspect]
     Active Substance: BUPIVACAINE
     Indication: NERVE BLOCK
     Dosage: 10ML PRIOR TO BANDAGING MORE PROXIMALLY THAN MARCAINE, FREQUENCY SINGLE
     Dates: start: 20190227, end: 20190227
  3. MARCAINE [Suspect]
     Active Substance: BUPIVACAINE HYDROCHLORIDE
     Indication: NERVE BLOCK
     Dosage: 10 ML, SINGLE, MID 1ST METATRASAL SHAFT 30 MINS AFTER LIDOCAINE BLOCK, FREQUENCY SINGLE
     Dates: start: 20190227

REACTIONS (2)
  - Therapeutic product effect decreased [Recovered/Resolved]
  - No adverse event [Unknown]
